FAERS Safety Report 6726532-9 (Version None)
Quarter: 2010Q2

REPORT INFORMATION
  Report Type: 
  Country: None (occurrence: None)
  Receive Date: 20100514
  Receipt Date: 20100507
  Transmission Date: 20101027
  Serious: Yes (Hospitalization)
  Sender: FDA-Public Use
  Company Number: DE-B.I. PHARMACEUTICALS,INC./RIDGEFIELD-2010-DE-02679BY

PATIENT
  Age: 81 Year
  Sex: Female

DRUGS (4)
  1. TELMISARTAN AND HYDROCHLOROTHIAZIDE [Suspect]
     Indication: HYPERTENSION
     Dosage: 92.5 MG
     Route: 048
  2. EBRANTIL [Suspect]
     Indication: HYPERTENSION
     Dosage: 60 MG
     Route: 048
     Dates: start: 20061222
  3. CARVEDILOL [Suspect]
     Indication: HYPERTENSION
     Dosage: 25 MG
     Route: 048
     Dates: start: 20030317
  4. MOXONIDINE [Concomitant]
     Indication: HYPERTENSION
     Dosage: 0.6 MG
     Route: 048
     Dates: start: 20030317

REACTIONS (1)
  - FALSE POSITIVE LABORATORY RESULT [None]
